FAERS Safety Report 4522596-1 (Version None)
Quarter: 2004Q4

REPORT INFORMATION
  Report Type: 
  Country: None (occurrence: None)
  Receive Date: 20041207
  Receipt Date: 20041124
  Transmission Date: 20050328
  Serious: Yes (Hospitalization)
  Sender: FDA-Public Use
  Company Number: 2004095271

PATIENT

DRUGS (1)
  1. FRAGMIN [Suspect]
     Indication: ILL-DEFINED DISORDER
     Dosage: 5000 I.U.

REACTIONS (5)
  - CHRONIC OBSTRUCTIVE AIRWAYS DISEASE [None]
  - GASTROINTESTINAL HAEMORRHAGE [None]
  - PLEURAL EFFUSION [None]
  - RESPIRATORY DISORDER [None]
  - THERAPY NON-RESPONDER [None]
